FAERS Safety Report 7481383-5 (Version None)
Quarter: 2011Q2

REPORT INFORMATION
  Report Type: 
  Country: None (occurrence: None)
  Receive Date: 20110516
  Receipt Date: 20110427
  Transmission Date: 20111010
  Serious: No
  Sender: FDA-Public Use
  Company Number: US-B.I. PHARMACEUTICALS,INC./RIDGEFIELD-2011-BP-06177BP

PATIENT
  Sex: Male

DRUGS (8)
  1. PRADAXA [Suspect]
     Indication: CARDIAC FAILURE CONGESTIVE
  2. FOSINOPRIL SODIUM [Concomitant]
     Dosage: 10 MG
  3. AMLODIPINE BESYLATE [Concomitant]
  4. KLOR-CON [Concomitant]
  5. PRADAXA [Suspect]
     Indication: ATRIAL FIBRILLATION
     Dosage: 300 MG
     Route: 048
     Dates: start: 20110210
  6. TAMSULOSIN HCL [Concomitant]
     Dosage: 0.4 MG
  7. FUROSEMIDE [Concomitant]
  8. METOPROLOL SUCCINATE [Concomitant]
     Dosage: 100 MG

REACTIONS (1)
  - DYSPNOEA [None]
